FAERS Safety Report 20853265 (Version 1)
Quarter: 2022Q2

REPORT INFORMATION
  Report Type: Spontaneous
  Country: ZA (occurrence: ZA)
  Receive Date: 20220520
  Receipt Date: 20220520
  Transmission Date: 20220721
  Serious: Yes (Hospitalization)
  Sender: FDA-Public Use
  Company Number: ZA-ABBVIE-22K-143-4399674-00

PATIENT
  Age: 48 Year
  Sex: Female

DRUGS (1)
  1. CREON [Suspect]
     Active Substance: PANCRELIPASE AMYLASE\PANCRELIPASE LIPASE\PANCRELIPASE PROTEASE
     Indication: Pancreatic failure
     Route: 048

REACTIONS (4)
  - Musculoskeletal chest pain [Not Recovered/Not Resolved]
  - Myocardial infarction [Recovered/Resolved]
  - Impaired gastric emptying [Not Recovered/Not Resolved]
  - General physical health deterioration [Not Recovered/Not Resolved]
